FAERS Safety Report 6390538-2 (Version None)
Quarter: 2009Q4

REPORT INFORMATION
  Report Type: 
  Country: None (occurrence: None)
  Receive Date: 20091006
  Receipt Date: 20090922
  Transmission Date: 20100525
  Serious: Yes (Hospitalization)
  Sender: FDA-Public Use
  Company Number: CN-MYLANLABS-2009S1016670

PATIENT
  Age: 19 Year
  Sex: Male

DRUGS (1)
  1. TRAMADOL HCL [Suspect]
     Indication: DRUG USE FOR UNKNOWN INDICATION
     Dosage: PATIENT FOUND WITH FIVE EMPTY PACKAGES OF TRAMADOL (100MG TABLET, 12 TABLETS/PACK, TOTAL DOSE 6G

REACTIONS (13)
  - ACUTE RESPIRATORY DISTRESS SYNDROME [None]
  - COMA [None]
  - CONVULSION [None]
  - DRUG ABUSE [None]
  - HYPERTONIA [None]
  - HYPOXIA [None]
  - LOSS OF CONSCIOUSNESS [None]
  - METABOLIC ACIDOSIS [None]
  - MULTI-ORGAN FAILURE [None]
  - OVERDOSE [None]
  - PULMONARY OEDEMA [None]
  - RESPIRATORY ACIDOSIS [None]
  - SINUS TACHYCARDIA [None]
